FAERS Safety Report 11118719 (Version 3)
Quarter: 2015Q3

REPORT INFORMATION
  Report Type: Spontaneous
  Country: JP (occurrence: JP)
  Receive Date: 20150518
  Receipt Date: 20150729
  Transmission Date: 20151125
  Serious: Yes (Other)
  Sender: FDA-Public Use
  Company Number: JP-PFIZER INC-2015166737

PATIENT
  Age: 51 Year
  Sex: Male

DRUGS (2)
  1. NOVASTAN [Suspect]
     Active Substance: ARGATROBAN
     Indication: EMBOLIC CEREBRAL INFARCTION
     Dosage: UNK
     Route: 042
  2. EDARAVONE [Suspect]
     Active Substance: EDARAVONE
     Indication: EMBOLIC CEREBRAL INFARCTION
     Dosage: UNK
     Route: 042

REACTIONS (1)
  - Carotid artery dissection [Recovering/Resolving]
